FAERS Safety Report 5426165-0 (Version None)
Quarter: 2007Q3

REPORT INFORMATION
  Report Type: 
  Country: None (occurrence: None)
  Receive Date: 20070827
  Receipt Date: 20070820
  Transmission Date: 20080115
  Serious: Yes (Hospitalization)
  Sender: FDA-Public Use
  Company Number: A0600978A

PATIENT
  Age: 69 Year
  Sex: Male
  Weight: 70.9 kg

DRUGS (7)
  1. AVANDIA [Suspect]
     Route: 048
     Dates: start: 20041001
  2. ASPIRIN [Concomitant]
  3. PRAVACHOL [Concomitant]
  4. GLUCOTROL [Concomitant]
  5. LOTREL [Concomitant]
  6. GLUCOPHAGE [Concomitant]
     Dosage: 500MG TWICE PER DAY
  7. VITAMIN CAP [Concomitant]

REACTIONS (14)
  - ANGINA UNSTABLE [None]
  - BLADDER CANCER [None]
  - BLOOD URINE PRESENT [None]
  - CHEST DISCOMFORT [None]
  - CHEST PAIN [None]
  - COLON NEOPLASM [None]
  - CORONARY ARTERY DISEASE [None]
  - COUGH [None]
  - MICTURITION URGENCY [None]
  - NON-SMALL CELL LUNG CANCER [None]
  - POLLAKIURIA [None]
  - SINUS BRADYCARDIA [None]
  - SUBCUTANEOUS EMPHYSEMA [None]
  - TRANSITIONAL CELL CARCINOMA [None]
